FAERS Safety Report 21183222 (Version 2)
Quarter: 2022Q3

REPORT INFORMATION
  Report Type: Spontaneous
  Country: DE (occurrence: DE)
  Receive Date: 20220808
  Receipt Date: 20220825
  Transmission Date: 20221026
  Serious: Yes (Other)
  Sender: FDA-Public Use
  Company Number: DE-ALKEM LABORATORIES LIMITED-DE-ALKEM-2022-07933

PATIENT
  Age: 61 Year
  Sex: Female
  Weight: 84 kg

DRUGS (22)
  1. ASPIRIN [Suspect]
     Active Substance: ASPIRIN
     Indication: Product used for unknown indication
     Dosage: 100 MILLIGRAM, EVERY 1 DAY (TABLET)
     Route: 048
  2. CALCIUM CARBONATE [Suspect]
     Active Substance: CALCIUM CARBONATE
     Indication: Product used for unknown indication
     Dosage: 2000 MILLIGRAM, EVERY 1 DAY (FILM-COATED TABLET)
     Route: 048
  3. CHOLECALCIFEROL [Suspect]
     Active Substance: CHOLECALCIFEROL
     Indication: Product used for unknown indication
     Dosage: 20000 IU INTERNATIONAL UNIT(S) (CAPSULE)
     Route: 048
  4. PREGABALIN [Suspect]
     Active Substance: PREGABALIN
     Indication: Product used for unknown indication
     Dosage: 75 MILLIGRAM, EVERY 1 DAY (CAPSULE, HARD)
     Route: 048
  5. METOPROLOL SUCCINATE [Suspect]
     Active Substance: METOPROLOL SUCCINATE
     Indication: Product used for unknown indication
     Dosage: 95 MILLIGRAM, AS NECESSARY (MODIFIED-RELEASE TABLET)
     Route: 065
  6. PANTOPRAZOLE [Suspect]
     Active Substance: PANTOPRAZOLE
     Indication: Product used for unknown indication
     Dosage: 20 MILLIGRAM, AS NECESSARY, TABLET
     Route: 048
  7. QUETIAPINE FUMARATE [Suspect]
     Active Substance: QUETIAPINE FUMARATE
     Indication: Product used for unknown indication
     Dosage: 25 MILLIGRAM, AS NECESSARY, TABLET
     Route: 048
  8. CALCIUM POLYSTYRENE SULFONATE [Suspect]
     Active Substance: CALCIUM POLYSTYRENE SULFONATE
     Indication: Product used for unknown indication
     Dosage: 14.9 GRAM (POWDER AND SOLVENT FOR ORAL SOLUTION)
     Route: 048
  9. CANDESARTAN CILEXETIL [Suspect]
     Active Substance: CANDESARTAN CILEXETIL
     Indication: Product used for unknown indication
     Dosage: 8 MILLIGRAM, EVERY 1 DAY, TABLET (UNCOATED, ORAL)
     Route: 048
  10. FERRLECIT [Suspect]
     Active Substance: SODIUM FERRIC GLUCONATE COMPLEX
     Indication: Product used for unknown indication
     Dosage: 6.25 MILLIGRAM, EVERY 2 WEEK
     Route: 042
  11. LEVOTHYROXINE [Suspect]
     Active Substance: LEVOTHYROXINE
     Indication: Product used for unknown indication
     Dosage: 200 MICROGRAM, EVERY 1 DAY (TABLET, UNCOATED)
     Route: 048
  12. LACTULOSE [Suspect]
     Active Substance: LACTULOSE
     Indication: Product used for unknown indication
     Dosage: UNK (AS NECESSARY)
     Route: 065
  13. REPAGLINIDE [Suspect]
     Active Substance: REPAGLINIDE
     Indication: Product used for unknown indication
     Dosage: 4 MILLIGRAM, EVERY 1 DAY, TABLET (UNCOATED, ORAL)
     Route: 048
  14. EPOETIN BETA [Suspect]
     Active Substance: ERYTHROPOIETIN
     Indication: Product used for unknown indication
     Dosage: 4000 IU INTERNATIONAL UNIT(S), EVERY 1 WEEK, FILM-COATED TABLET
     Route: 042
  15. EPOETIN BETA [Suspect]
     Active Substance: ERYTHROPOIETIN
     Dosage: 4000 IU INTERNATIONAL UNIT(S), EVERY 1 WEEK
     Route: 048
  16. PALLADONE [Suspect]
     Active Substance: HYDROMORPHONE HYDROCHLORIDE
     Indication: Product used for unknown indication
     Dosage: 8 MILLIGRAM, EVERY 1 DAY
     Route: 065
  17. PALLADONE [Suspect]
     Active Substance: HYDROMORPHONE HYDROCHLORIDE
     Indication: Product used for unknown indication
     Dosage: 1.3 MILLIGRAM, EVERY ONE DAY
     Route: 048
  18. DIHYDROCODEINE THIOCYANATE [Suspect]
     Active Substance: DIHYDROCODEINE THIOCYANATE
     Indication: Product used for unknown indication
     Dosage: 20 DROPS (ORAL DROPS)
     Route: 048
  19. SEVELAMER CARBONATE [Suspect]
     Active Substance: SEVELAMER CARBONATE
     Indication: Product used for unknown indication
     Dosage: 4000 MILLIGRAM, EVERY 1 DAY
     Route: 048
  20. TORSEMIDE [Suspect]
     Active Substance: TORSEMIDE
     Indication: Product used for unknown indication
     Dosage: 100 MILLIGRAM, OD (TABLET, UNCOATED)
     Route: 048
  21. TORSEMIDE [Suspect]
     Active Substance: TORSEMIDE
     Dosage: 200 MILLIGRAM, EVERY 1 DAY, TABLET
     Route: 048
  22. ZINC OROTATE [Suspect]
     Active Substance: ZINC OROTATE
     Indication: Product used for unknown indication
     Dosage: 40 MILLIGRAM, EVERY 1 DAY
     Route: 048

REACTIONS (3)
  - Rash [Recovering/Resolving]
  - Condition aggravated [Recovering/Resolving]
  - Pruritus [Recovering/Resolving]
